FAERS Safety Report 13951936 (Version 1)
Quarter: 2017Q3

REPORT INFORMATION
  Report Type: Report from Study
  Country: CA (occurrence: CA)
  Receive Date: 20170910
  Receipt Date: 20170910
  Transmission Date: 20171128
  Serious: Yes (Death)
  Sender: FDA-Public Use
  Company Number: PHHY2016CA154912

PATIENT
  Age: 65 Year
  Sex: Female

DRUGS (2)
  1. AFINITOR [Suspect]
     Active Substance: EVEROLIMUS
     Indication: BREAST CANCER
     Dosage: 10 MG, QD
     Route: 048
     Dates: start: 20161101
  2. EXEMESTANE. [Concomitant]
     Active Substance: EXEMESTANE
     Indication: PRODUCT USED FOR UNKNOWN INDICATION
     Route: 065

REACTIONS (15)
  - Myalgia [Unknown]
  - Dyspnoea [Recovered/Resolved]
  - Gingival pain [Unknown]
  - Decreased appetite [Unknown]
  - Death [Fatal]
  - Asthenia [Unknown]
  - Bone pain [Unknown]
  - Muscular weakness [Unknown]
  - Malaise [Unknown]
  - Arthralgia [Recovered/Resolved]
  - Cough [Unknown]
  - Peripheral swelling [Recovering/Resolving]
  - Fatigue [Unknown]
  - Blood potassium decreased [Unknown]
  - Wheezing [Unknown]

NARRATIVE: CASE EVENT DATE: 201701
